FAERS Safety Report 25386000 (Version 1)
Quarter: 2025Q2

REPORT INFORMATION
  Report Type: Report from Study
  Country: IT (occurrence: IT)
  Receive Date: 20250602
  Receipt Date: 20250602
  Transmission Date: 20250716
  Serious: Yes (Death, Life-Threatening, Hospitalization)
  Sender: RANBAXY
  Company Number: IT-SUN PHARMACEUTICAL INDUSTRIES LTD-2025R1-510068

PATIENT
  Age: 88 Year
  Sex: Male

DRUGS (19)
  1. FUROSEMIDE [Suspect]
     Active Substance: FUROSEMIDE
     Indication: Pulmonary embolism
     Route: 065
     Dates: start: 20140625
  2. MIDAZOLAM [Suspect]
     Active Substance: MIDAZOLAM
     Indication: Agitation
     Route: 065
     Dates: start: 20140624
  3. METRONIDAZOLE [Suspect]
     Active Substance: METRONIDAZOLE
     Indication: Pulmonary embolism
     Route: 065
     Dates: start: 20140625
  4. OMEPRAZOLE [Suspect]
     Active Substance: OMEPRAZOLE
     Indication: Pulmonary embolism
     Route: 065
     Dates: start: 20140624
  5. LEVOFLOXACIN [Suspect]
     Active Substance: LEVOFLOXACIN
     Indication: Pulmonary embolism
     Route: 065
     Dates: start: 20140624
  6. SODIUM CHLORIDE [Suspect]
     Active Substance: SODIUM CHLORIDE
     Indication: Pulmonary embolism
     Route: 065
  7. DEXTROSE [Suspect]
     Active Substance: DEXTROSE MONOHYDRATE
     Indication: Pulmonary embolism
     Route: 065
     Dates: start: 20140625
  8. VANCOMYCIN [Suspect]
     Active Substance: VANCOMYCIN
     Indication: Pulmonary embolism
     Route: 065
     Dates: start: 20140624
  9. RANITIDINE [Suspect]
     Active Substance: RANITIDINE
     Indication: Pulmonary embolism
     Route: 065
     Dates: start: 20140625
  10. HEPARIN CALCIUM [Suspect]
     Active Substance: HEPARIN CALCIUM
     Indication: Pulmonary embolism
     Route: 065
  11. HEPARIN SODIUM [Suspect]
     Active Substance: HEPARIN SODIUM
     Indication: Pulmonary embolism
     Route: 065
     Dates: start: 20140624
  12. RIFAMPIN [Suspect]
     Active Substance: RIFAMPIN
     Indication: Pulmonary embolism
     Route: 065
     Dates: start: 20140625
  13. POLYGELINE [Suspect]
     Active Substance: POLYGELINE
     Indication: Pulmonary embolism
     Route: 065
     Dates: start: 20140625
  14. OXACILLIN SODIUM [Suspect]
     Active Substance: OXACILLIN SODIUM
     Indication: Product used for unknown indication
     Route: 065
     Dates: start: 20140625
  15. ALBUMIN HUMAN [Suspect]
     Active Substance: ALBUMIN HUMAN
     Indication: Product used for unknown indication
     Route: 065
  16. GENTAMICIN [Suspect]
     Active Substance: GENTAMICIN
     Indication: Pulmonary embolism
     Route: 065
     Dates: start: 20140626
  17. LACTATED RINGERS SOLUTION [Suspect]
     Active Substance: CALCIUM CHLORIDE\POTASSIUM CHLORIDE\SODIUM CHLORIDE\SODIUM LACTATE
     Indication: Pulmonary embolism
     Route: 065
     Dates: start: 20140624
  18. POTASSIUM CHLORIDE\SODIUM CHLORIDE [Suspect]
     Active Substance: POTASSIUM CHLORIDE\SODIUM CHLORIDE
     Indication: Pulmonary embolism
     Route: 065
  19. INSULIN LISPRO [Suspect]
     Active Substance: INSULIN LISPRO
     Indication: Product used for unknown indication
     Route: 065
     Dates: start: 20140626

REACTIONS (1)
  - Treatment failure [Fatal]
